FAERS Safety Report 13756988 (Version 2)
Quarter: 2017Q3

REPORT INFORMATION
  Report Type: Report from Study
  Country: AT (occurrence: AT)
  Receive Date: 20170714
  Receipt Date: 20170728
  Transmission Date: 20171127
  Serious: Yes (Death, Hospitalization, Other)
  Sender: FDA-Public Use
  Company Number: AT-GILEAD-2017-0282757

PATIENT
  Sex: Male

DRUGS (2)
  1. EMTRICITABINE/TENOFOVIR DISOPROXIL FUMARATE [Suspect]
     Active Substance: EMTRICITABINE\TENOFOVIR DISOPROXIL FUMARATE
     Indication: HIV INFECTION
     Dosage: 1 DF, UNK
     Route: 048
     Dates: end: 20170419
  2. DESCOVY [Suspect]
     Active Substance: EMTRICITABINE\TENOFOVIR ALAFENAMIDE FUMARATE
     Indication: HIV INFECTION
     Route: 065

REACTIONS (34)
  - Central nervous system lesion [Not Recovered/Not Resolved]
  - Hepatic failure [Not Recovered/Not Resolved]
  - Blood alkaline phosphatase increased [Unknown]
  - Hepatic function abnormal [Unknown]
  - Hyperbilirubinaemia [Unknown]
  - Neurological symptom [Recovered/Resolved]
  - Altered state of consciousness [Recovered/Resolved]
  - C-reactive protein abnormal [Unknown]
  - Blood creatinine increased [Unknown]
  - Pericardial effusion [Unknown]
  - Cholestasis [Unknown]
  - Lymphadenopathy [Not Recovered/Not Resolved]
  - Intra-abdominal fluid collection [Unknown]
  - Computerised tomogram thorax abnormal [Unknown]
  - Histiocytosis haematophagic [Not Recovered/Not Resolved]
  - Pyrexia [Unknown]
  - Jaundice [Unknown]
  - Serum ferritin increased [Unknown]
  - General physical health deterioration [Recovering/Resolving]
  - Acute kidney injury [Not Recovered/Not Resolved]
  - Retroperitoneal lymphadenopathy [Not Recovered/Not Resolved]
  - Demyelination [Unknown]
  - Influenza like illness [Unknown]
  - International normalised ratio increased [Unknown]
  - Epstein-Barr virus infection [Unknown]
  - Constipation [Unknown]
  - Hodgkin^s disease [Not Recovered/Not Resolved]
  - Cerebral ischaemia [Not Recovered/Not Resolved]
  - Loss of consciousness [Not Recovered/Not Resolved]
  - Pancytopenia [Unknown]
  - C-reactive protein increased [Unknown]
  - Disseminated intravascular coagulation [Fatal]
  - Chromaturia [Unknown]
  - Cholelithiasis [Unknown]

NARRATIVE: CASE EVENT DATE: 2017
